FAERS Safety Report 9203846 (Version 1)
Quarter: 2013Q2

REPORT INFORMATION
  Report Type: Spontaneous
  Country: BE (occurrence: BE)
  Receive Date: 20130402
  Receipt Date: 20130402
  Transmission Date: 20140414
  Serious: Yes (Hospitalization)
  Sender: FDA-Public Use
  Company Number: BE-PFIZER INC-2013101986

PATIENT
  Age: 38 Year
  Sex: Female

DRUGS (3)
  1. LEDERTREXATE /00113801/ [Suspect]
     Indication: RHEUMATOID ARTHRITIS
     Dosage: UNK
  2. MEDROL [Suspect]
     Indication: RHEUMATOID ARTHRITIS
     Dosage: UNK
  3. VIMOVO [Concomitant]
     Indication: RHEUMATOID ARTHRITIS

REACTIONS (1)
  - Erysipelas [Unknown]
